FAERS Safety Report 8309221-9 (Version None)
Quarter: 2012Q2

REPORT INFORMATION
  Report Type: 
  Country: None (occurrence: None)
  Receive Date: 20120424
  Receipt Date: 20120418
  Transmission Date: 20120825
  Serious: Yes (Hospitalization, Other)
  Sender: FDA-Public Use
  Company Number: FR-GILEAD-2012-0050448

PATIENT
  Sex: Male

DRUGS (16)
  1. CYCLOPHOSPHAMIDE [Suspect]
     Indication: SCLERODERMA
     Dosage: 1.1 G, (DEPENDING OF THE SOURSE)
     Route: 042
     Dates: start: 20110826, end: 20111216
  2. POTASSIUM CHLORIDE [Concomitant]
     Indication: PRODUCT USED FOR UNKNOWN INDICATION
     Dosage: UNK
  3. FUNGIZONE [Concomitant]
     Dosage: UNK
     Dates: start: 20111217
  4. VIREAD [Suspect]
     Indication: HEPATITIS B
     Dosage: 245 MG, QD
     Route: 048
     Dates: start: 20110826, end: 20120326
  5. AZATHIOPRINE [Suspect]
     Indication: PRODUCT USED FOR UNKNOWN INDICATION
     Dosage: UNK
     Dates: start: 20050601, end: 20110810
  6. CALCIDOSE                          /00108001/ [Concomitant]
     Dosage: 1 DF, UNK
  7. FLUCONAZOLE [Suspect]
     Dosage: UNK
     Route: 048
     Dates: start: 20111216
  8. PANTOPRAZOLE [Concomitant]
     Indication: PRODUCT USED FOR UNKNOWN INDICATION
     Dosage: UNK
  9. SYMBICORT [Concomitant]
     Dosage: 400 UNKNOWN, UNK
  10. MESNA [Concomitant]
     Dosage: 1100 MG, AT EACH COURSE
  11. PREDNISONE TAB [Concomitant]
     Indication: PRODUCT USED FOR UNKNOWN INDICATION
     Dosage: 17.5 MG, UNK
  12. BACTRIM [Concomitant]
     Indication: ANTIFUNGAL PROPHYLAXIS
     Dosage: 3 DF, Q1WK
     Route: 048
     Dates: start: 20110828, end: 20120106
  13. LAMIVUDINE [Concomitant]
     Dosage: UNK
     Dates: start: 20050601, end: 20110101
  14. OMEPRAZOLE [Concomitant]
     Dosage: 20 UNKNOWN, UNK
  15. FLUCONAZOLE [Suspect]
     Dosage: 100 MG, UNK
     Route: 048
     Dates: start: 20110923, end: 20111021
  16. CYCLOPHOSPHAMIDE [Suspect]
     Indication: OVERLAP SYNDROME

REACTIONS (5)
  - DRUG INTERACTION [None]
  - DRUG INEFFECTIVE [None]
  - VIRAL LOAD INCREASED [None]
  - TRANSAMINASES INCREASED [None]
  - HEPATITIS B [None]
